FAERS Safety Report 9941196 (Version 1)
Quarter: 2014Q1

REPORT INFORMATION
  Report Type: Report from Study
  Country: US (occurrence: US)
  Receive Date: 20140303
  Receipt Date: 20140303
  Transmission Date: 20141002
  Serious: Yes (Other)
  Sender: FDA-Public Use
  Company Number: US-ABBVIE-13P-163-1043114-00

PATIENT
  Age: 57 Year
  Sex: Female

DRUGS (5)
  1. HUMIRA [Suspect]
     Indication: RHEUMATOID ARTHRITIS
     Dates: start: 2007
  2. BACTRIM [Suspect]
     Indication: URINARY TRACT INFECTION
     Dates: start: 2009
  3. METHOTREXATE [Concomitant]
     Dosage: 8 TABLETS WEEKLY
  4. FOLIC ACID [Concomitant]
     Dosage: 1 MG DAILY
  5. VITAMIN D [Concomitant]
     Dosage: DAILY

REACTIONS (5)
  - Cholelithiasis [Recovered/Resolved]
  - Urinary tract infection [Recovered/Resolved]
  - Rash macular [Recovered/Resolved]
  - Blister [Recovered/Resolved]
  - Skin discolouration [Not Recovered/Not Resolved]
